FAERS Safety Report 22071208 (Version 1)
Quarter: 2023Q1

REPORT INFORMATION
  Report Type: Report from Study
  Country: GB (occurrence: GB)
  Receive Date: 20230307
  Receipt Date: 20230307
  Transmission Date: 20230418
  Serious: Yes (Hospitalization, Other)
  Sender: FDA-Public Use
  Company Number: GB-009507513-2301GBR007585

PATIENT
  Age: 55 Year
  Sex: Female

DRUGS (6)
  1. CARBOPLATIN [Suspect]
     Active Substance: CARBOPLATIN
     Indication: Triple negative breast cancer
     Dosage: UNK;
     Route: 065
     Dates: end: 20220919
  2. CARBOPLATIN [Suspect]
     Active Substance: CARBOPLATIN
     Dosage: UNK;
     Route: 065
     Dates: start: 20221102
  3. PACLITAXEL [Suspect]
     Active Substance: PACLITAXEL
     Indication: Triple negative breast cancer
     Dosage: UNK;
     Route: 065
     Dates: end: 20220919
  4. PACLITAXEL [Suspect]
     Active Substance: PACLITAXEL
     Dosage: UNK;
     Route: 065
     Dates: start: 20221102
  5. PEMBROLIZUMAB [Suspect]
     Active Substance: PEMBROLIZUMAB
     Indication: Triple negative breast cancer
     Dosage: 2 CYCLES ADMINISTERED; KEYTRUDA,
     Route: 065
     Dates: start: 20220505, end: 20220727
  6. PEMBROLIZUMAB [Suspect]
     Active Substance: PEMBROLIZUMAB
     Dosage: 200MG; KEYTRUDA
     Route: 042
     Dates: start: 20220513, end: 20220727

REACTIONS (2)
  - Neurotoxicity [Recovering/Resolving]
  - Conversion disorder [Recovering/Resolving]

NARRATIVE: CASE EVENT DATE: 20220101
